FAERS Safety Report 5691640-0 (Version None)
Quarter: 2008Q2

REPORT INFORMATION
  Report Type: 
  Country: None (occurrence: None)
  Receive Date: 20080402
  Receipt Date: 20080325
  Transmission Date: 20081010
  Serious: Yes (Hospitalization)
  Sender: FDA-Public Use
  Company Number: DE-AMGEN-US271453

PATIENT
  Sex: Male
  Weight: 71 kg

DRUGS (1)
  1. ENBREL [Suspect]
     Indication: POLYARTHRITIS
     Route: 058
     Dates: start: 20080204, end: 20080225

REACTIONS (1)
  - ALVEOLITIS [None]
